FAERS Safety Report 7770295-5 (Version None)
Quarter: 2011Q3

REPORT INFORMATION
  Report Type: 
  Country: None (occurrence: None)
  Receive Date: 20110922
  Receipt Date: 20110506
  Transmission Date: 20111222
  Serious: No
  Sender: FDA-Public Use
  Company Number: US-ASTRAZENECA-2011SE27577

PATIENT
  Age: 57 Year
  Sex: Female
  Weight: 79.4 kg

DRUGS (6)
  1. MULTI-VITAMIN [Concomitant]
  2. SEROQUEL [Suspect]
     Indication: BIPOLAR DISORDER
     Route: 048
     Dates: start: 20091201
  3. THYROID MEDICATION [Concomitant]
     Dates: end: 20110401
  4. NIACIN [Concomitant]
  5. FISH OIL [Concomitant]
  6. GLUCOSAMINE [Concomitant]

REACTIONS (6)
  - RESTLESSNESS [None]
  - WEIGHT INCREASED [None]
  - SLUGGISHNESS [None]
  - WRONG TECHNIQUE IN DRUG USAGE PROCESS [None]
  - ANXIETY [None]
  - THERAPEUTIC RESPONSE UNEXPECTED [None]
